FAERS Safety Report 22157233 (Version 1)
Quarter: 2023Q1

REPORT INFORMATION
  Report Type: Report from Study
  Country: US (occurrence: US)
  Receive Date: 20230330
  Receipt Date: 20230330
  Transmission Date: 20230418
  Serious: Yes (Death, Hospitalization, Other)
  Sender: FDA-Public Use
  Company Number: US-009507513-1812USA006980

PATIENT
  Sex: Male
  Weight: 79.832 kg

DRUGS (5)
  1. KEYTRUDA [Suspect]
     Active Substance: PEMBROLIZUMAB
     Indication: Bladder cancer
     Dosage: 200 MILLIGRAM,100MG/4ML, VALID FOR 21DAYS
     Route: 042
     Dates: start: 20180824
  2. VESICARE [Concomitant]
     Active Substance: SOLIFENACIN SUCCINATE
     Dosage: UNK, QD
     Route: 048
  3. ASPIRIN [Concomitant]
     Active Substance: ASPIRIN
     Dosage: 1 DOSAGE FORM, QD
  4. NEXIUM [Concomitant]
     Active Substance: ESOMEPRAZOLE MAGNESIUM
     Dosage: 1 DOSAGE FORM, QD
     Route: 048
  5. CLARITIN [Concomitant]
     Active Substance: LORATADINE
     Dosage: 1 DOSAGE FORM, QD
     Route: 048

REACTIONS (15)
  - Death [Fatal]
  - Gastrointestinal arteriovenous malformation [Unknown]
  - Deep vein thrombosis [Unknown]
  - Helicobacter gastritis [Unknown]
  - Peptic ulcer [Unknown]
  - Abdominal pain [Unknown]
  - Dyspepsia [Unknown]
  - Fatigue [Unknown]
  - Asthenia [Unknown]
  - Weight decreased [Unknown]
  - Hypotension [Unknown]
  - Dyspepsia [Unknown]
  - Abdominal discomfort [Unknown]
  - Hallucination, visual [Unknown]
  - Nausea [Unknown]

NARRATIVE: CASE EVENT DATE: 20180101
